FAERS Safety Report 9932631 (Version 1)
Quarter: 2014Q1

REPORT INFORMATION
  Report Type: Spontaneous
  Country: US (occurrence: None)
  Receive Date: 20140227
  Receipt Date: 20140227
  Transmission Date: 20141002
  Serious: Yes (Other)
  Sender: FDA-Public Use
  Company Number: None

PATIENT
  Age: 36 Year
  Sex: Female

DRUGS (4)
  1. AMPHETAMINE SALTS [Suspect]
     Indication: ATTENTION DEFICIT/HYPERACTIVITY DISORDER
     Dosage: 2 TABLETS BID
     Route: 048
     Dates: start: 20140124, end: 20140225
  2. ZOLPIDEM TARTRATE [Suspect]
     Indication: INSOMNIA
     Dosage: 1 TABLET QHS/BEDTIME
     Route: 048
     Dates: start: 20140124, end: 20140225
  3. VIIBRYD [Concomitant]
  4. KLONOPIN [Concomitant]

REACTIONS (2)
  - Drug ineffective [None]
  - Product substitution issue [None]
